FAERS Safety Report 10506767 (Version 1)
Quarter: 2014Q3

REPORT INFORMATION
  Report Type: Spontaneous
  Country: US (occurrence: None)
  Receive Date: 20140915
  Receipt Date: 20140915
  Transmission Date: 20150326
  Serious: Yes (Other)
  Sender: FDA-Public Use
  Company Number: 2013-US-004655

PATIENT
  Age: 50 Year
  Sex: Male
  Weight: 86.2 kg

DRUGS (3)
  1. KLONOPIN ( CLONAZEPAM) [Concomitant]
  2. XYREM [Suspect]
     Active Substance: SODIUM OXYBATE
     Indication: INSOMNIA
     Dosage: 2.25 G, BID, ORAL
     Route: 048
     Dates: start: 201311, end: 2013
  3. ALL OTHER THERAPEUTIC PRODUCTS [Concomitant]
     Active Substance: UNSPECIFIED INGREDIENT

REACTIONS (3)
  - Depression [None]
  - Drug ineffective for unapproved indication [None]
  - Off label use [None]

NARRATIVE: CASE EVENT DATE: 2013
